FAERS Safety Report 6792872-0 (Version None)
Quarter: 2010Q2

REPORT INFORMATION
  Report Type: 
  Country: None (occurrence: None)
  Receive Date: 20100624
  Receipt Date: 20081118
  Transmission Date: 20101027
  Serious: No
  Sender: FDA-Public Use
  Company Number: US-PFIZER INC-2008088419

PATIENT
  Sex: Female
  Weight: 61.4 kg

DRUGS (8)
  1. DEPO-SUBQ PROVERA 104 [Suspect]
     Route: 058
     Dates: start: 20060101
  2. NEURONTIN [Concomitant]
  3. SYNTHROID [Concomitant]
     Indication: HYPOTHYROIDISM
  4. PREVACID [Concomitant]
     Indication: GASTROOESOPHAGEAL REFLUX DISEASE
  5. PREMARIN [Concomitant]
  6. CALCIUM CITRATE [Concomitant]
  7. CENTRUM SILVER [Concomitant]
  8. METFORMIN HCL [Concomitant]
     Indication: GLUCOSE TOLERANCE IMPAIRED

REACTIONS (4)
  - HYPERHIDROSIS [None]
  - INCORRECT DOSE ADMINISTERED [None]
  - NAUSEA [None]
  - PYREXIA [None]
